FAERS Safety Report 7010098-2 (Version None)
Quarter: 2010Q3

REPORT INFORMATION
  Report Type: 
  Country: None (occurrence: None)
  Receive Date: 20100923
  Receipt Date: 20100913
  Transmission Date: 20110219
  Serious: Yes (Other)
  Sender: FDA-Public Use
  Company Number: AU-WYE-G06660110

PATIENT
  Sex: Male

DRUGS (3)
  1. EFFEXOR XR [Suspect]
     Indication: ALCOHOLISM
     Dates: start: 20000101
  2. DERALIN [Concomitant]
  3. NEXIUM [Concomitant]

REACTIONS (4)
  - BLADDER NEOPLASM [None]
  - DRUG WITHDRAWAL SYNDROME [None]
  - FEELING ABNORMAL [None]
  - PERIPHERAL ARTERIAL OCCLUSIVE DISEASE [None]
